FAERS Safety Report 8532287-8 (Version None)
Quarter: 2012Q3

REPORT INFORMATION
  Report Type: 
  Country: None (occurrence: None)
  Receive Date: 20120724
  Receipt Date: 20120712
  Transmission Date: 20120928
  Serious: Yes (Hospitalization)
  Sender: FDA-Public Use
  Company Number: JP-MSD-1202USA04299

PATIENT

DRUGS (6)
  1. FAMOTIDINE [Suspect]
     Indication: GASTROOESOPHAGEAL REFLUX DISEASE
     Dosage: 10 MG, BID
     Route: 048
     Dates: start: 20060301, end: 20120228
  2. SELTOUCH [Concomitant]
     Indication: MYALGIA
     Dates: start: 20110406
  3. ENBREL [Concomitant]
     Indication: RHEUMATOID ARTHRITIS
     Dates: start: 20101022
  4. SELBEX [Concomitant]
     Indication: GASTRITIS
     Route: 048
     Dates: start: 20110906, end: 20120223
  5. METICORTELONE [Suspect]
     Indication: RHEUMATOID ARTHRITIS
     Dosage: 2.5 MG, BID
     Route: 048
     Dates: start: 20100621
  6. MOBIC [Suspect]
     Indication: RHEUMATOID ARTHRITIS
     Dosage: UID/QID
     Route: 048
     Dates: start: 20110906, end: 20120223

REACTIONS (1)
  - POLYMYOSITIS [None]
